FAERS Safety Report 7425177-5 (Version None)
Quarter: 2011Q2

REPORT INFORMATION
  Report Type: 
  Country: None (occurrence: None)
  Receive Date: 20110413
  Receipt Date: 20110406
  Transmission Date: 20111010
  Serious: Yes (Death)
  Sender: FDA-Public Use
  Company Number: DSA_44949_2011

PATIENT
  Sex: Female
  Weight: 60.3284 kg

DRUGS (22)
  1. LEVOTWIROXINE SODIUM [Concomitant]
  2. ASPIRIN [Concomitant]
  3. FISH OIL [Concomitant]
  4. OXYBUTYNIN [Concomitant]
  5. ULTRAM [Concomitant]
  6. NORVASC [Concomitant]
  7. CALCIUM 600 + D [Concomitant]
  8. EXELON [Concomitant]
  9. PILOCARPINE [Concomitant]
  10. MULTI-VITAMINS [Concomitant]
  11. LYRICA [Concomitant]
  12. LEXAPRO [Concomitant]
  13. MIRALAX [Concomitant]
  14. IMDUR [Concomitant]
  15. REQUIP [Concomitant]
  16. DOCUSATE SODIUM [Concomitant]
  17. DEPAKOTE [Concomitant]
  18. XENAZINE [Suspect]
     Indication: CHOREA
     Dosage: (25 MG TID ORAL), (25 MG, TWO AND 1/2 TABLETS DAILY ORAL)
     Route: 048
     Dates: start: 20090325, end: 20090609
  19. XENAZINE [Suspect]
     Indication: CHOREA
     Dosage: (25 MG TID ORAL), (25 MG, TWO AND 1/2 TABLETS DAILY ORAL)
     Route: 048
     Dates: start: 20090610
  20. SINEMET [Concomitant]
  21. NITROGLYCERIN [Concomitant]
  22. BUSPAR [Concomitant]

REACTIONS (1)
  - DEATH [None]
